FAERS Safety Report 9303450 (Version 1)
Quarter: 2013Q2

REPORT INFORMATION
  Report Type: Spontaneous
  Country: US (occurrence: US)
  Receive Date: 20130522
  Receipt Date: 20130522
  Transmission Date: 20140414
  Serious: No
  Sender: FDA-Public Use
  Company Number: US-BAYER-2013-063297

PATIENT
  Age: 46 Year
  Sex: Male
  Weight: 70 kg

DRUGS (1)
  1. ALEVE TABLET [Suspect]
     Dosage: 1 DF, QD WITH FOOD
     Route: 048

REACTIONS (2)
  - Drug screen positive [Unknown]
  - Incorrect drug administration duration [None]
